FAERS Safety Report 8625965-3 (Version None)
Quarter: 2012Q3

REPORT INFORMATION
  Report Type: 
  Country: None (occurrence: None)
  Receive Date: 20120827
  Receipt Date: 20110922
  Transmission Date: 20120928
  Serious: Yes (Other)
  Sender: FDA-Public Use
  Company Number: AU-ROCHE-GNE320370

PATIENT
  Sex: Female

DRUGS (2)
  1. LUCENTIS [Suspect]
     Indication: AGE-RELATED MACULAR DEGENERATION
     Dosage: 0.05 ML, 3/MONTH
     Route: 050
     Dates: start: 20100101
  2. LUCENTIS [Suspect]
     Route: 050
     Dates: start: 20110215

REACTIONS (2)
  - EYE INFECTION [None]
  - BLEPHARITIS [None]
